FAERS Safety Report 4372206-1 (Version None)
Quarter: 2004Q2

REPORT INFORMATION
  Report Type: 
  Country: None (occurrence: None)
  Receive Date: 20040607
  Receipt Date: 20040517
  Transmission Date: 20050107
  Serious: Yes (Hospitalization)
  Sender: FDA-Public Use
  Company Number: BE-GLAXOSMITHKLINE-B0334699A

PATIENT
  Sex: Female

DRUGS (1)
  1. ZINNAT [Suspect]
     Indication: PNEUMONIA
     Dosage: 500MG THREE TIMES PER DAY
     Route: 048

REACTIONS (3)
  - DIZZINESS [None]
  - NYSTAGMUS [None]
  - PNEUMONIA [None]
